FAERS Safety Report 5670020-8 (Version None)
Quarter: 2008Q1

REPORT INFORMATION
  Report Type: 
  Country: None (occurrence: None)
  Receive Date: 20080312
  Receipt Date: 20080228
  Transmission Date: 20080703
  Serious: Yes (Other)
  Sender: FDA-Public Use
  Company Number: 2008000450

PATIENT
  Age: 64 Year
  Sex: Male

DRUGS (1)
  1. TARCEVA [Suspect]
     Indication: LUNG NEOPLASM MALIGNANT
     Dates: start: 20071203, end: 20071204

REACTIONS (1)
  - ADENOCARCINOMA PANCREAS [None]
